FAERS Safety Report 13622640 (Version 1)
Quarter: 2017Q2

REPORT INFORMATION
  Report Type: Not Available
  Country: CH (occurrence: CH)
  Receive Date: 20170607
  Receipt Date: 20170607
  Transmission Date: 20170830
  Serious: Yes (Life-Threatening, Hospitalization)
  Sender: FDA-Public Use
  Company Number: CH-IDTAUSTRALIA-2017-CH-000004

PATIENT
  Age: 62 Year
  Sex: Male

DRUGS (3)
  1. QUETIAPINE. [Suspect]
     Active Substance: QUETIAPINE
  2. LAMOTRIGINE. [Suspect]
     Active Substance: LAMOTRIGINE
  3. FLECAINIDE ACETATE (NON-SPECIFIC) [Suspect]
     Active Substance: FLECAINIDE ACETATE
     Dosage: 1.25G
     Route: 048

REACTIONS (6)
  - Somnolence [Recovered/Resolved]
  - Electrocardiogram QRS complex abnormal [Recovered/Resolved]
  - Atrioventricular block [Recovered/Resolved]
  - Electrocardiogram abnormal [Recovered/Resolved]
  - Drug interaction [Recovered/Resolved]
  - Suicide attempt [Unknown]
